FAERS Safety Report 24582767 (Version 2)
Quarter: 2024Q4

REPORT INFORMATION
  Report Type: Report from Study
  Country: NL (occurrence: NL)
  Receive Date: 20241106
  Receipt Date: 20241119
  Transmission Date: 20250114
  Serious: Yes (Other)
  Sender: ABBVIE
  Company Number: NL-ABBVIE-5868601

PATIENT
  Age: 75 Year
  Sex: Male

DRUGS (16)
  1. CARBIDOPA\LEVODOPA [Suspect]
     Active Substance: CARBIDOPA\LEVODOPA
     Indication: Parkinson^s disease
     Dosage: LD:0.00ML, BIR:0.47ML/H, HIR:0.47ML/H, LIR:0.24ML/H, ED:0.10ML, GOES TO 24 HOURS
     Route: 058
     Dates: start: 20240729, end: 20240731
  2. CARBIDOPA\LEVODOPA [Suspect]
     Active Substance: CARBIDOPA\LEVODOPA
     Dosage: BIR:0.56ML/H, HIR:0.56ML/H, LIR:0.28ML/H, ED:0.20ML?REMAINS AT 24 HOURS
     Route: 058
     Dates: start: 20240806, end: 20240906
  3. CARBIDOPA\LEVODOPA [Suspect]
     Active Substance: CARBIDOPA\LEVODOPA
     Dosage: BIR:0.62ML/H; LIR:0.29ML/H, ED:0.20ML, REMAINS AT 24 HOURS
     Route: 058
     Dates: start: 20240924, end: 20241021
  4. CARBIDOPA\LEVODOPA [Suspect]
     Active Substance: CARBIDOPA\LEVODOPA
     Dosage: BIR:0.62ML/H; HIR:0.62ML/H, LIR:0.31ML/H, ED:0.20ML
     Route: 058
     Dates: start: 20241112
  5. CARBIDOPA\LEVODOPA [Suspect]
     Active Substance: CARBIDOPA\LEVODOPA
     Dosage: LD:0.00ML, BIR:0.53ML/H, HIR:0.53ML/H, LIR:0.28ML/H, ED:0.15ML, REMAINS AT 24 HOURS
     Route: 058
     Dates: start: 20240731, end: 20240805
  6. CARBIDOPA\LEVODOPA [Suspect]
     Active Substance: CARBIDOPA\LEVODOPA
     Dosage: BIR:0.59ML/H; LIR:0.29ML/H, ED:0.20ML REMAINS AT 24 HOURS
     Route: 058
     Dates: start: 20240906, end: 20240924
  7. CARBIDOPA\LEVODOPA [Suspect]
     Active Substance: CARBIDOPA\LEVODOPA
     Dosage: LD:0.00ML, BIR:0.47ML/H, HIR:0.47ML/H, LIR:0.24ML/H, ED:0.10ML?REMAINS AT 24 HOURS
     Route: 058
     Dates: start: 20241021, end: 20241112
  8. CARBIDOPA\LEVODOPA [Suspect]
     Active Substance: CARBIDOPA\LEVODOPA
     Dosage: LD:0.00ML, BIR:0.53ML/H, HIR:0.53ML/H, LIR:0.28ML/H, ED:0.20ML, REMAINS AT 24 HOURS
     Route: 058
     Dates: start: 20240805, end: 20240806
  9. TRAMADOL [Concomitant]
     Active Substance: TRAMADOL
     Indication: Back disorder
  10. NAPROXEN [Concomitant]
     Active Substance: NAPROXEN
     Indication: Back disorder
  11. NAPROXEN [Concomitant]
     Active Substance: NAPROXEN
     Indication: Back disorder
  12. FUROSEMIDE [Concomitant]
     Active Substance: FUROSEMIDE
     Indication: Product used for unknown indication
     Dates: start: 20240813
  13. AMLODIPINE [Concomitant]
     Active Substance: AMLODIPINE BESYLATE
     Indication: Product used for unknown indication
     Dates: start: 20240813
  14. VALSARTAN [Concomitant]
     Active Substance: VALSARTAN
     Indication: Product used for unknown indication
     Dates: start: 20240813
  15. OXYCODONE [Concomitant]
     Active Substance: OXYCODONE
     Indication: Product used for unknown indication
  16. INSULIN NOS [Concomitant]
     Active Substance: INSULIN NOS
     Indication: Diabetes mellitus
     Dosage: REDUCED DOSE

REACTIONS (47)
  - Pulmonary embolism [Not Recovered/Not Resolved]
  - Movement disorder [Not Recovered/Not Resolved]
  - Fatigue [Not Recovered/Not Resolved]
  - Unevaluable event [Not Recovered/Not Resolved]
  - Muscle rigidity [Recovering/Resolving]
  - Hypotension [Not Recovered/Not Resolved]
  - Back pain [Recovered/Resolved with Sequelae]
  - Weight increased [Recovered/Resolved]
  - On and off phenomenon [Not Recovered/Not Resolved]
  - Decreased appetite [Recovered/Resolved]
  - Infusion site pain [Recovered/Resolved]
  - Gait disturbance [Not Recovered/Not Resolved]
  - Weight decreased [Not Recovered/Not Resolved]
  - Confusional state [Recovering/Resolving]
  - Constipation [Unknown]
  - Emotional disorder [Not Recovered/Not Resolved]
  - Coronary artery occlusion [Not Recovered/Not Resolved]
  - Infusion site extravasation [Not Recovered/Not Resolved]
  - Infusion site erythema [Recovering/Resolving]
  - Infusion site warmth [Not Recovered/Not Resolved]
  - Slow speech [Not Recovered/Not Resolved]
  - Diabetes mellitus [Not Recovered/Not Resolved]
  - Infusion site pain [Not Recovered/Not Resolved]
  - Fatigue [Recovered/Resolved]
  - Infusion site erythema [Not Recovered/Not Resolved]
  - Hallucination [Recovered/Resolved]
  - Speech disorder [Not Recovered/Not Resolved]
  - Fatigue [Not Recovered/Not Resolved]
  - Fall [Not Recovered/Not Resolved]
  - Catheter site discharge [Not Recovered/Not Resolved]
  - Therapeutic product effect incomplete [Not Recovered/Not Resolved]
  - Depressed mood [Not Recovered/Not Resolved]
  - Coronary artery disease [Unknown]
  - Catheter site infection [Unknown]
  - Thoracic vertebral fracture [Recovering/Resolving]
  - Tremor [Not Recovered/Not Resolved]
  - Weight decreased [Not Recovered/Not Resolved]
  - Hypertension [Not Recovered/Not Resolved]
  - Infusion site inflammation [Not Recovered/Not Resolved]
  - Depression [Not Recovered/Not Resolved]
  - Chest discomfort [Not Recovered/Not Resolved]
  - Infusion site induration [Not Recovered/Not Resolved]
  - Arterial disorder [Unknown]
  - Therapeutic product effect incomplete [Not Recovered/Not Resolved]
  - Infusion site mass [Not Recovered/Not Resolved]
  - Device occlusion [Not Recovered/Not Resolved]
  - Off label use [Not Recovered/Not Resolved]

NARRATIVE: CASE EVENT DATE: 20240101
